FAERS Safety Report 20179721 (Version 5)
Quarter: 2024Q2

REPORT INFORMATION
  Report Type: Report from Study
  Country: US (occurrence: US)
  Receive Date: 20211214
  Receipt Date: 20240624
  Transmission Date: 20240716
  Serious: Yes (Other)
  Sender: FDA-Public Use
  Company Number: US-TAKEDA-2021TUS078030

PATIENT
  Age: 55 Year
  Sex: Male

DRUGS (42)
  1. TEDUGLUTIDE [Suspect]
     Active Substance: TEDUGLUTIDE
     Indication: Short-bowel syndrome
     Dosage: 3.6 MILLIGRAM, QD
     Route: 042
     Dates: start: 20180409
  2. TEDUGLUTIDE [Suspect]
     Active Substance: TEDUGLUTIDE
     Indication: Short-bowel syndrome
     Dosage: 3.6 MILLIGRAM, QD
     Route: 042
     Dates: start: 20180409
  3. TEDUGLUTIDE [Suspect]
     Active Substance: TEDUGLUTIDE
     Indication: Short-bowel syndrome
     Dosage: 3.6 MILLIGRAM, QD
     Route: 042
     Dates: start: 20180409
  4. TEDUGLUTIDE [Suspect]
     Active Substance: TEDUGLUTIDE
     Indication: Short-bowel syndrome
     Dosage: 3.6 MILLIGRAM, QD
     Route: 042
     Dates: start: 20180409
  5. RIFAXIMIN [Concomitant]
     Active Substance: RIFAXIMIN
     Indication: Diarrhoea
     Dosage: 550 MILLIGRAM, QD
     Route: 048
     Dates: start: 20210127
  6. BACTROBAN [Concomitant]
     Active Substance: MUPIROCIN CALCIUM
     Indication: Proctitis
     Dosage: UNK
     Route: 061
     Dates: start: 20210127
  7. HYDROCORTISONE [Concomitant]
     Active Substance: HYDROCORTISONE\HYDROCORTISONE ACETATE
     Indication: Proctitis
     Dosage: 1 DOSAGE FORM, BID
     Route: 054
     Dates: start: 20210127
  8. IMURAN [Concomitant]
     Active Substance: AZATHIOPRINE
     Indication: Crohn^s disease
     Dosage: 150 MILLIGRAM, QD
     Route: 048
     Dates: end: 20180801
  9. IMURAN [Concomitant]
     Active Substance: AZATHIOPRINE
     Dosage: 150 MILLIGRAM, QD
     Route: 048
     Dates: start: 20190311
  10. CYANOCOBALAMIN [Concomitant]
     Active Substance: CYANOCOBALAMIN
     Indication: Mineral deficiency
     Dosage: 1000 MICROGRAM
     Route: 058
  11. ERGOCALCIFEROL [Concomitant]
     Active Substance: ERGOCALCIFEROL
     Indication: Mineral deficiency
     Dosage: 50000 INTERNATIONAL UNIT, 1/WEEK
     Route: 048
     Dates: end: 20180522
  12. ERGOCALCIFEROL [Concomitant]
     Active Substance: ERGOCALCIFEROL
     Dosage: 50000 INTERNATIONAL UNIT
     Route: 048
     Dates: start: 20180525, end: 20181107
  13. ERGOCALCIFEROL [Concomitant]
     Active Substance: ERGOCALCIFEROL
     Dosage: 50000 INTERNATIONAL UNIT
     Route: 048
     Dates: start: 20181108, end: 20200723
  14. ERGOCALCIFEROL [Concomitant]
     Active Substance: ERGOCALCIFEROL
     Dosage: 50000 INTERNATIONAL UNITS
     Route: 048
     Dates: start: 20200724, end: 20210115
  15. ERGOCALCIFEROL [Concomitant]
     Active Substance: ERGOCALCIFEROL
     Dosage: 5000 INTERNATIONAL UNIT
     Route: 048
     Dates: start: 20201209
  16. MONTELUKAST SODIUM [Concomitant]
     Active Substance: MONTELUKAST SODIUM
     Indication: Seasonal allergy
     Dosage: 10 MILLIGRAM, QD
     Route: 048
     Dates: end: 20180801
  17. PROBIOTICS NOS [Concomitant]
     Active Substance: PROBIOTICS NOS
     Indication: Colitis
     Dosage: 600 UNK, BID
     Route: 048
     Dates: end: 20200722
  18. ZINC GLUCONATE [Concomitant]
     Active Substance: ZINC GLUCONATE
     Indication: Mineral deficiency
     Dosage: 50 MILLIGRAM, QD
     Route: 048
  19. ATROPINE SULFATE\DIPHENOXYLATE HYDROCHLORIDE [Concomitant]
     Active Substance: ATROPINE SULFATE\DIPHENOXYLATE HYDROCHLORIDE
     Indication: Diarrhoea
     Dosage: 2.50 MILLIGRAM, QID
     Route: 048
     Dates: end: 20180801
  20. ATROPINE SULFATE\DIPHENOXYLATE HYDROCHLORIDE [Concomitant]
     Active Substance: ATROPINE SULFATE\DIPHENOXYLATE HYDROCHLORIDE
     Dosage: 5 MILLIGRAM, TID
     Route: 048
     Dates: start: 20181130, end: 20190313
  21. PROTONIX [Concomitant]
     Active Substance: PANTOPRAZOLE SODIUM
     Indication: Product used for unknown indication
     Dosage: 40 MILLIGRAM, BID
     Route: 048
     Dates: start: 20200722
  22. COLCHICINE [Concomitant]
     Active Substance: COLCHICINE
     Indication: Pericarditis
     Dosage: 0.6 MILLIGRAM, BID
     Route: 048
     Dates: start: 20200722, end: 20200915
  23. IBUPROFEN [Concomitant]
     Active Substance: IBUPROFEN
     Indication: Pericarditis
     Dosage: 600 MILLIGRAM, TID
     Route: 048
     Dates: start: 20200723, end: 20200915
  24. CHOLECALCIFEROL [Concomitant]
     Active Substance: CHOLECALCIFEROL
     Indication: Vitamin D deficiency
     Dosage: 20000 INTERNATIONAL UNIT, 1/WEEK
     Route: 048
     Dates: start: 20210114
  25. PROMETHAZINE [Concomitant]
     Active Substance: PROMETHAZINE HYDROCHLORIDE
     Indication: Nausea
     Dosage: 50 MILLIGRAM, PRN
     Route: 048
     Dates: start: 20201206
  26. ALBUTEROL SULFATE [Concomitant]
     Active Substance: ALBUTEROL SULFATE
     Indication: Dyspnoea
     Dosage: 90 MILLIGRAM, PRN
     Route: 048
     Dates: start: 20210411
  27. AMOXICILLIN [Concomitant]
     Active Substance: AMOXICILLIN
     Indication: Fungal infection
     Dosage: 400 MILLIGRAM, TID
     Route: 048
     Dates: start: 20210524, end: 20210530
  28. AMOXICILLIN\CLAVULANIC ACID [Concomitant]
     Active Substance: AMOXICILLIN\CLAVULANIC ACID
     Indication: Fungal infection
     Dosage: 5 MILLILITER, TID
     Route: 048
     Dates: start: 20210910, end: 20210916
  29. ATROPINE SULFATE [Concomitant]
     Active Substance: ATROPINE SULFATE
     Indication: Fungal infection
     Dosage: 9 MILLILITER, TID
     Route: 047
     Dates: start: 20210914, end: 20210916
  30. AZELASTINE [Concomitant]
     Active Substance: AZELASTINE\AZELASTINE HYDROCHLORIDE
     Indication: Eye pruritus
     Dosage: 137 MICROGRAM, BID
     Route: 050
     Dates: start: 20201208
  31. AZITHROMYCIN [Concomitant]
     Active Substance: AZITHROMYCIN
     Indication: Fungal infection
     Dosage: 200 MICROGRAM, QD
     Route: 048
     Dates: start: 20210525, end: 20210529
  32. AZITHROMYCIN [Concomitant]
     Active Substance: AZITHROMYCIN
     Dosage: UNK
  33. CEFDINIR [Concomitant]
     Active Substance: CEFDINIR
     Indication: Sinusitis
     Dosage: 250 MILLIGRAM, QD
     Route: 048
     Dates: start: 20210914, end: 20211018
  34. CLONAZEPAM [Concomitant]
     Active Substance: CLONAZEPAM
     Indication: Anxiety
     Dosage: 1 MILLIGRAM, QD
     Route: 048
     Dates: start: 20201224
  35. CYCLOPENTOLATE HYDROCHLORIDE [Concomitant]
     Active Substance: CYCLOPENTOLATE HYDROCHLORIDE
     Indication: Fungal infection
     Dosage: 9 MILLILITER, QD
     Route: 047
     Dates: start: 20211118
  36. DOXYCYCLINE [Concomitant]
     Active Substance: DOXYCYCLINE\DOXYCYCLINE HYCLATE
     Indication: Sinusitis
     Dosage: 25 MILLIGRAM, BID
     Route: 048
     Dates: start: 20210720, end: 20210820
  37. ESCITALOPRAM [Concomitant]
     Active Substance: ESCITALOPRAM OXALATE
     Indication: Anxiety
     Dosage: 20 MILLIGRAM, QD
     Route: 048
     Dates: start: 20201208
  38. FLUCONAZOLE [Concomitant]
     Active Substance: FLUCONAZOLE
     Indication: Fungal infection
     Dosage: 150 MILLIGRAM, QD
     Route: 048
     Dates: start: 20210326, end: 20210328
  39. FLUCONAZOLE [Concomitant]
     Active Substance: FLUCONAZOLE
     Dosage: 200 MILLIGRAM, QD
     Route: 048
     Dates: start: 20210606, end: 20210610
  40. HYDROXYZINE HYDROCHLORIDE [Concomitant]
     Active Substance: HYDROXYZINE HYDROCHLORIDE
     Indication: Pruritus
     Dosage: 10 MILLIGRAM, QD
     Route: 048
     Dates: start: 20210422, end: 20210517
  41. KETOCONAZOLE [Concomitant]
     Active Substance: KETOCONAZOLE
     Indication: Fungal infection
     Dosage: 2 PERCENT, QD
     Route: 061
     Dates: start: 20210101
  42. GUAIFENESIN [Concomitant]
     Active Substance: GUAIFENESIN
     Indication: Sinusitis
     Dosage: 100 MILLIGRAM
     Route: 048
     Dates: start: 20210528, end: 20210611

REACTIONS (3)
  - Anal stenosis [Recovered/Resolved]
  - Large intestine polyp [Recovered/Resolved]
  - Flatulence [Not Recovered/Not Resolved]

NARRATIVE: CASE EVENT DATE: 20210811
